FAERS Safety Report 26189764 (Version 1)
Quarter: 2025Q4

REPORT INFORMATION
  Report Type: Spontaneous
  Country: US (occurrence: US)
  Receive Date: 20251223
  Receipt Date: 20251223
  Transmission Date: 20260118
  Serious: Yes (Life-Threatening, Hospitalization, Other)
  Sender: SOMERSET THERAPEUTICS, LLC
  Company Number: US-MIT-25-75-US-2025-SOM-LIT-00508

PATIENT
  Age: 72 Year
  Sex: Female

DRUGS (1)
  1. ROPIVACAINE HYDROCHLORIDE [Suspect]
     Active Substance: ROPIVACAINE HYDROCHLORIDE
     Indication: Procedural pain
     Route: 014

REACTIONS (4)
  - Local anaesthetic systemic toxicity [Recovered/Resolved]
  - Encephalopathy [Recovered/Resolved]
  - Respiratory depression [Recovered/Resolved]
  - Hypotension [Recovered/Resolved]
